FAERS Safety Report 8534295-X (Version None)
Quarter: 2012Q3

REPORT INFORMATION
  Report Type: 
  Country: None (occurrence: None)
  Receive Date: 20120711
  Receipt Date: 20120627
  Transmission Date: 20120928
  Serious: Yes (Other)
  Sender: FDA-Public Use
  Company Number: 2012AP002002

PATIENT
  Age: 72 Year
  Sex: Female

DRUGS (3)
  1. ATORVASTATIN [Suspect]
     Indication: PRODUCT USED FOR UNKNOWN INDICATION
  2. AMIODARONE HYDROCHLORIDE [Suspect]
     Indication: OFF LABEL USE
  3. AMIODARONE HYDROCHLORIDE [Suspect]
     Indication: TACHYARRHYTHMIA

REACTIONS (6)
  - DYSPHAGIA [None]
  - ATAXIA [None]
  - MYOCLONUS [None]
  - OFF LABEL USE [None]
  - NEUROPATHY PERIPHERAL [None]
  - MYOPATHY [None]
